FAERS Safety Report 8448972-2 (Version None)
Quarter: 2012Q2

REPORT INFORMATION
  Report Type: 
  Country: None (occurrence: None)
  Receive Date: 20120613
  Receipt Date: 20120604
  Transmission Date: 20120825
  Serious: Yes (Other)
  Sender: FDA-Public Use
  Company Number: 2012-2528

PATIENT
  Sex: Female

DRUGS (2)
  1. BOTULINUM TOXIN TYPE A [Suspect]
     Indication: SKIN WRINKLING
     Dosage: NOR REPORTED, SINGLE CYCLE),
     Dates: start: 20120604, end: 20120604
  2. BOTULINUM TOXIN TYPE A [Suspect]
     Indication: PRODUCT USED FOR UNKNOWN INDICATION
     Dosage: NOR REPORTED, SINGLE CYCLE),
     Dates: start: 20120604, end: 20120604

REACTIONS (4)
  - CHILLS [None]
  - SWELLING FACE [None]
  - FLUSHING [None]
  - PYREXIA [None]
